FAERS Safety Report 6374167-2 (Version None)
Quarter: 2009Q3

REPORT INFORMATION
  Report Type: 
  Country: None (occurrence: None)
  Receive Date: 20090924
  Receipt Date: 20090618
  Transmission Date: 20100115
  Serious: No
  Sender: FDA-Public Use
  Company Number: US-ASTRAZENECA-2009UW16130

PATIENT
  Age: 43 Year
  Sex: Female
  Weight: 50.3 kg

DRUGS (16)
  1. SEROQUEL [Suspect]
     Indication: DEPRESSION
     Dosage: 12.5 MG, PRN + UP TO 3 TIMES A DAY
     Route: 048
     Dates: start: 20081101
  2. SEROQUEL [Suspect]
     Indication: ANXIETY
     Dosage: 12.5 MG, PRN + UP TO 3 TIMES A DAY
     Route: 048
     Dates: start: 20081101
  3. LORAZEPAM [Concomitant]
  4. XOLAIR [Concomitant]
  5. PROVENTIL-HFA [Concomitant]
  6. ASMANEX TWISTHALER [Concomitant]
  7. NASACORT AQ [Concomitant]
  8. ATROVENT NS [Concomitant]
  9. PATANASE [Concomitant]
  10. SOMA [Concomitant]
  11. FLEXERIL [Concomitant]
  12. VICODIN HP [Concomitant]
  13. IBUPROFEN [Concomitant]
  14. BENTYL [Concomitant]
  15. ACIPHEX [Concomitant]
  16. PREDNISONE [Concomitant]

REACTIONS (2)
  - DIZZINESS [None]
  - ILL-DEFINED DISORDER [None]
